FAERS Safety Report 12532002 (Version 2)
Quarter: 2016Q3

REPORT INFORMATION
  Report Type: Spontaneous
  Country: JP (occurrence: JP)
  Receive Date: 20160706
  Receipt Date: 20160805
  Transmission Date: 20161109
  Serious: Yes (Death)
  Sender: FDA-Public Use
  Company Number: JP-MALLINCKRODT-T201503547

PATIENT
  Age: 46 Year
  Sex: Female

DRUGS (6)
  1. AUGMENTIN [Concomitant]
     Active Substance: AMOXICILLIN\CLAVULANATE POTASSIUM
     Dosage: 3 DF
     Route: 048
     Dates: start: 20150705, end: 20150708
  2. SULBACILLIN [Concomitant]
     Active Substance: AMPICILLIN SODIUM\SULBACTAM SODIUM
     Dosage: 3 G UNK
     Route: 051
     Dates: start: 20150701, end: 20150704
  3. OXYCONTIN [Concomitant]
     Active Substance: OXYCODONE HYDROCHLORIDE
     Indication: ANALGESIC THERAPY
     Dosage: 40 MG UNK
     Route: 048
     Dates: start: 20150527
  4. BETAMETHASONE. [Concomitant]
     Active Substance: BETAMETHASONE
     Dosage: 1 MG UNK
     Route: 048
     Dates: start: 20150422
  5. METHADONE [Suspect]
     Active Substance: METHADONE HYDROCHLORIDE
     Indication: CANCER PAIN
     Dosage: 15 MG DAILY DOSE
     Route: 048
     Dates: start: 20150702, end: 20150923
  6. MAGMITT [Concomitant]
     Active Substance: MAGNESIUM OXIDE
     Dosage: 1000 MG UNK
     Route: 048
     Dates: start: 20150422

REACTIONS (1)
  - Cervix carcinoma [Fatal]

NARRATIVE: CASE EVENT DATE: 20151009
